FAERS Safety Report 12248755 (Version 1)
Quarter: 2016Q2

REPORT INFORMATION
  Report Type: Spontaneous
  Country: US (occurrence: None)
  Receive Date: 20160407
  Receipt Date: 20160407
  Transmission Date: 20160815
  Serious: Yes (Hospitalization)
  Sender: FDA-Public Use
  Company Number: None

PATIENT
  Age: 60 Year
  Sex: Male
  Weight: 96.62 kg

DRUGS (2)
  1. PRALATREXATE [Suspect]
     Active Substance: PRALATREXATE
     Indication: MYCOSIS FUNGOIDES
     Dosage: 25MG/M2, Q2WEEKS, IV
     Route: 042
     Dates: start: 20160331
  2. ROMIDEPSIN [Suspect]
     Active Substance: ROMIDEPSIN
     Dosage: 12MG/M2, Q2WEEKS, IV
     Route: 042
     Dates: start: 20160331

REACTIONS (3)
  - Pain of skin [None]
  - Inflammation [None]
  - Erythema [None]

NARRATIVE: CASE EVENT DATE: 20160404
